FAERS Safety Report 5941096-5 (Version None)
Quarter: 2008Q4

REPORT INFORMATION
  Report Type: 
  Country: None (occurrence: None)
  Receive Date: 20081104
  Receipt Date: 20081022
  Transmission Date: 20090506
  Serious: No
  Sender: FDA-Public Use
  Company Number: AT-ELI_LILLY_AND_COMPANY-AT200808001607

PATIENT
  Age: 52 Year
  Sex: Male
  Weight: 70 kg

DRUGS (10)
  1. ZYPREXA [Suspect]
     Indication: SLEEP DISORDER
     Dosage: 15 MG, DAILY (1/D)
     Route: 048
     Dates: start: 20080719, end: 20080725
  2. ZYPREXA [Suspect]
     Dosage: 20 MG, DAILY (1/D)
     Route: 048
     Dates: start: 20080726, end: 20080805
  3. ZYPREXA [Suspect]
     Dosage: 15 MG, DAILY (1/D)
     Route: 048
     Dates: start: 20080806, end: 20080814
  4. MIRTAZAPINE [Concomitant]
     Indication: PREMEDICATION
     Dosage: 30 MG, DAILY (1/D)
  5. TOLVON [Concomitant]
     Dosage: 30 MG, DAILY (1/D)
     Dates: start: 20080728
  6. VENLAFAXINE HCL [Concomitant]
     Indication: PREMEDICATION
     Dosage: 75 MG, DAILY (1/D)
  7. SIMVASTATIN [Concomitant]
     Dosage: 20 MG, DAILY (1/D)
     Dates: start: 20080819
  8. ALNA [Concomitant]
     Dosage: 0.4 MG, DAILY (1/D)
  9. NOZINAN [Concomitant]
     Dosage: 50 MG, DAILY (1/D)
     Route: 048
     Dates: end: 20080718
  10. PENTOMER [Concomitant]
     Dates: start: 20080725, end: 20080803

REACTIONS (5)
  - ALANINE AMINOTRANSFERASE INCREASED [None]
  - ASPARTATE AMINOTRANSFERASE INCREASED [None]
  - GAMMA-GLUTAMYLTRANSFERASE INCREASED [None]
  - HEPATIC ENZYME INCREASED [None]
  - INTENTIONAL DRUG MISUSE [None]
